FAERS Safety Report 24868332 (Version 1)
Quarter: 2025Q1

REPORT INFORMATION
  Report Type: Spontaneous
  Country: US (occurrence: None)
  Receive Date: 20250120
  Receipt Date: 20250120
  Transmission Date: 20250409
  Serious: Yes (Life-Threatening, Other)
  Sender: FDA-CTU
  Company Number: None

PATIENT
  Age: 55 Year
  Sex: Female

DRUGS (1)
  1. CIPRO [Suspect]
     Active Substance: CIPROFLOXACIN HYDROCHLORIDE
     Indication: Infection
     Dates: start: 20240118, end: 20240122

REACTIONS (2)
  - Loss of consciousness [None]
  - Impaired driving ability [None]

NARRATIVE: CASE EVENT DATE: 20240122
